FAERS Safety Report 7224627-7 (Version None)
Quarter: 2011Q1

REPORT INFORMATION
  Report Type: 
  Country: None (occurrence: None)
  Receive Date: 20110106
  Receipt Date: 20110106
  Transmission Date: 20110831
  Serious: Yes (Other)
  Sender: FDA-Public Use
  Company Number: None

PATIENT
  Age: 43 Year
  Sex: Female
  Weight: 62.5964 kg

DRUGS (1)
  1. CIPROFLOXAN 500 MG CIPROFLOXACIN [Suspect]
     Indication: URINARY TRACT INFECTION
     Dosage: 1 PILL TWICE DAILY PO
     Route: 048
     Dates: start: 20091009, end: 20091011

REACTIONS (10)
  - INSOMNIA [None]
  - SUICIDAL IDEATION [None]
  - FEELING ABNORMAL [None]
  - BURNING SENSATION [None]
  - NIGHTMARE [None]
  - TENDON DISORDER [None]
  - TINNITUS [None]
  - PARAESTHESIA [None]
  - HYPERSOMNIA [None]
  - PANIC ATTACK [None]
